FAERS Safety Report 10419049 (Version 1)
Quarter: 2014Q2

REPORT INFORMATION
  Report Type: Report from Study
  Country: US (occurrence: None)
  Receive Date: 20140627
  Receipt Date: 20140627
  Transmission Date: 20141212
  Serious: No
  Sender: FDA-Public Use
  Company Number: CABO-14004118

PATIENT
  Age: 71 Year
  Sex: Male

DRUGS (1)
  1. COMETRIQ (CABOZANTINIB) CAPSULE [Suspect]
     Indication: PROSTATE CANCER
     Route: 048
     Dates: start: 20140301, end: 20140322

REACTIONS (8)
  - Dysuria [None]
  - Proctalgia [None]
  - Stomatitis [None]
  - White blood cell count decreased [None]
  - Blister [None]
  - Ageusia [None]
  - Rash [None]
  - Off label use [None]
